FAERS Safety Report 5210915-2 (Version None)
Quarter: 2007Q1

REPORT INFORMATION
  Report Type: 
  Country: None (occurrence: None)
  Receive Date: 20070117
  Receipt Date: 20070112
  Transmission Date: 20070707
  Serious: Yes (Life-Threatening)
  Sender: FDA-Public Use
  Company Number: FR-BOEHRINGER INGELHEIM PHARMACEUTICALS, INC.-2006-DE-04070BY

PATIENT
  Age: 86 Year
  Sex: Male

DRUGS (4)
  1. PRITOR [Suspect]
     Route: 048
     Dates: start: 20051212, end: 20060203
  2. VASTAREL [Concomitant]
     Route: 048
     Dates: start: 20051213, end: 20060203
  3. GINKOGINK [Concomitant]
     Route: 048
     Dates: start: 20030307, end: 20060203
  4. PLAVIX [Concomitant]
     Route: 048
     Dates: start: 20051213

REACTIONS (5)
  - DEHYDRATION [None]
  - ELECTROCARDIOGRAM ABNORMAL [None]
  - HYPERKALAEMIA [None]
  - LUNG INFECTION [None]
  - RENAL FAILURE ACUTE [None]
